FAERS Safety Report 23285562 (Version 10)
Quarter: 2024Q2

REPORT INFORMATION
  Report Type: Report from Study
  Country: US (occurrence: US)
  Receive Date: 20231212
  Receipt Date: 20240612
  Transmission Date: 20240715
  Serious: Yes (Other)
  Sender: FDA-Public Use
  Company Number: US-ABBVIE-5281364

PATIENT
  Sex: Female
  Weight: 86.182 kg

DRUGS (30)
  1. SYNTHROID [Suspect]
     Active Substance: LEVOTHYROXINE SODIUM
     Indication: Hypothyroidism
     Dosage: FORM STRENGTH: 50 MICROGRAM, START DATE TEXT: DEC 2022 OR JAN 2023
     Route: 048
     Dates: end: 20230606
  2. SYNTHROID [Suspect]
     Active Substance: LEVOTHYROXINE SODIUM
     Indication: Hypothyroidism
     Dosage: FORM STRENGTH: 50 MICROGRAM
     Route: 048
  3. SYNTHROID [Suspect]
     Active Substance: LEVOTHYROXINE SODIUM
     Indication: Hypothyroidism
     Route: 048
     Dates: start: 20201112
  4. LEXAPRO [Concomitant]
     Active Substance: ESCITALOPRAM OXALATE
     Indication: Anxiety
     Dosage: START DATE TEXT: APPROXIMATELY 15-20 YEARS AGO
     Route: 048
  5. PLAQUENIL [Suspect]
     Active Substance: HYDROXYCHLOROQUINE SULFATE
     Indication: Lichen planus
     Dosage: DURATION TEXT: 10-12 DAYS
     Route: 065
     Dates: start: 20230725, end: 202308
  6. CLOBETASOL [Concomitant]
     Active Substance: CLOBETASOL
     Indication: Product used for unknown indication
     Dosage: 0.05 % TOPICAL - FOAM
     Route: 061
  7. TRIAMCINOLONE ACETONIDE [Concomitant]
     Active Substance: TRIAMCINOLONE ACETONIDE
     Indication: Product used for unknown indication
     Dosage: 0.1 % TOPICAL CREAM?FREQUENCY TEXT: 2 OR 3 TIMES DAILY AS NEEDED
     Route: 061
  8. PREDNISONE [Concomitant]
     Active Substance: PREDNISONE
     Indication: Product used for unknown indication
     Dosage: FORM STRENGTH: 20 MG
     Route: 048
  9. PREDNISONE [Concomitant]
     Active Substance: PREDNISONE
     Indication: Product used for unknown indication
     Dosage: 10 MG ORAL - TABLET FORM STRENGTH: 10 MG
     Route: 048
  10. TRIAMCINOLONE [Concomitant]
     Active Substance: TRIAMCINOLONE
     Indication: Product used for unknown indication
     Dosage: 0.1 % TOPICAL CREAM FREQUENCY TEXT: 2 OR 3 TIMES DAILY AS NEEDED
  11. METRONIDAZOLE [Concomitant]
     Active Substance: METRONIDAZOLE
     Indication: Product used for unknown indication
     Dosage: 500 MG ORAL - TABLET?TAKE 1 TABLET BY MOUTH TWICE DAILY FOR 4 WEEKS.
     Route: 048
  12. ARISTOCORT [Concomitant]
     Active Substance: TRIAMCINOLONE DIACETATE
     Indication: Product used for unknown indication
     Dosage: 0.1 % TOPICAL?APPLY TO AFFECTED AREA 2 OR 3 TIMES DAILY AS NEEDED
     Route: 061
     Dates: start: 20230725
  13. FAMOTIDINE [Concomitant]
     Active Substance: FAMOTIDINE
     Indication: Product used for unknown indication
     Route: 048
  14. METHYLPREDNISOLONE [Concomitant]
     Active Substance: METHYLPREDNISOLONE
     Indication: Product used for unknown indication
     Dosage: DOSE PACK?FORM STRENGTH: 4 MILLIGRAM
     Route: 048
  15. UNITHROID [Concomitant]
     Active Substance: LEVOTHYROXINE SODIUM
     Indication: Product used for unknown indication
     Dosage: FORM STRENGTH: 50 MICROGRAM?TABLET TAKE 1 TABLET(S) EVERY DAY BY ORAL ROUTE.
     Route: 048
  16. VITAMIN D3 [Concomitant]
     Active Substance: CHOLECALCIFEROL
     Indication: Product used for unknown indication
     Dosage: 10,000 UNIT/GRAM
     Route: 048
     Dates: end: 20160803
  17. VITAMIN B12 [Concomitant]
     Active Substance: CYANOCOBALAMIN
     Indication: Product used for unknown indication
     Dosage: TIME INTERVAL: TOTAL: 100 MCG TOTAL
     Route: 048
  18. AMOXICILLIN [Concomitant]
     Active Substance: AMOXICILLIN
     Indication: Product used for unknown indication
     Dosage: 875 MG-POTASSIUM CLAVULANATE 125 MG TABLET
     Route: 048
  19. XANAX [Concomitant]
     Active Substance: ALPRAZOLAM
     Indication: Anxiety
     Dosage: TAKE 1 MG BY MOUTH AT BEDTIME AS NEEDED FOR SLEEP
     Route: 048
  20. XANAX [Concomitant]
     Active Substance: ALPRAZOLAM
     Indication: Anxiety
     Dosage: HALF A TABLET DAILY AS NEEDED
     Route: 048
     Dates: start: 20221122
  21. XANAX [Concomitant]
     Active Substance: ALPRAZOLAM
     Indication: Anxiety
     Dosage: START DATE TEXT: A FEW YEARS AGO?FREQUENCY TEXT: TOOK TWO DOSES IN 2023
     Route: 048
  22. PEPCID [Concomitant]
     Active Substance: FAMOTIDINE
     Indication: Product used for unknown indication
     Dosage: TIME INTERVAL: TOTAL
     Route: 048
  23. FLUOCINONIDE [Concomitant]
     Active Substance: FLUOCINONIDE
     Indication: Product used for unknown indication
     Dosage: 0.05 % TOPICAL - CREAM
     Route: 061
  24. ALLEGRA [Concomitant]
     Active Substance: FEXOFENADINE HYDROCHLORIDE
     Indication: Product used for unknown indication
     Dosage: TAKE 180 MG BY MOUTH AS NEEDED
     Route: 048
  25. METAXALONE [Concomitant]
     Active Substance: METAXALONE
     Indication: Product used for unknown indication
     Dosage: TIME INTERVAL: 0.33333333 DAYS
     Route: 048
  26. ESCITALOPRAM OXALATE [Concomitant]
     Active Substance: ESCITALOPRAM OXALATE
     Indication: Anxiety
     Dosage: START DATE TEXT: APPROXIMATELY 15-20 YEARS AGO
     Route: 048
  27. LEVOTHYROXINE [Suspect]
     Active Substance: LEVOTHYROXINE\LEVOTHYROXINE SODIUM
     Indication: Hypothyroidism
     Dosage: FORM STRENGTH 50 MICROGRAM
     Route: 048
     Dates: start: 20231005
  28. LEVOTHYROXINE [Suspect]
     Active Substance: LEVOTHYROXINE\LEVOTHYROXINE SODIUM
     Indication: Hypothyroidism
     Dosage: STOP DATE TEXT: DEC 2022 OR JAN 2023, FORM STRENGTH: 50 MICROGRAM
     Route: 048
  29. LEVOTHROID [Concomitant]
     Active Substance: LEVOTHYROXINE SODIUM
     Indication: Product used for unknown indication
     Dates: start: 20201112
  30. LEVOXYL [Concomitant]
     Active Substance: LEVOTHYROXINE SODIUM
     Indication: Product used for unknown indication
     Dates: start: 20201112

REACTIONS (49)
  - Suicidal ideation [Unknown]
  - Product dispensing error [Unknown]
  - Insomnia [Recovered/Resolved]
  - Post inflammatory pigmentation change [Not Recovered/Not Resolved]
  - Scar [Not Recovered/Not Resolved]
  - Diarrhoea [Not Recovered/Not Resolved]
  - Arthralgia [Unknown]
  - Drug hypersensitivity [Recovering/Resolving]
  - Weight increased [Unknown]
  - Skin hypertrophy [Not Recovered/Not Resolved]
  - Unevaluable event [Unknown]
  - Pain of skin [Not Recovered/Not Resolved]
  - Pruritus [Recovering/Resolving]
  - Lichen planus [Recovered/Resolved]
  - Nightmare [Unknown]
  - Skin burning sensation [Recovered/Resolved]
  - Paraesthesia [Recovering/Resolving]
  - Wound complication [Unknown]
  - Feeling of despair [Unknown]
  - Insomnia [Unknown]
  - Hypothyroidism [Unknown]
  - Glucose tolerance impaired [Unknown]
  - Rash pruritic [Unknown]
  - Lichen planus [Unknown]
  - Macule [Unknown]
  - Skin atrophy [Unknown]
  - Skin hypopigmentation [Unknown]
  - Telangiectasia [Unknown]
  - Dizziness [Unknown]
  - Abdominal discomfort [Unknown]
  - Nausea [Unknown]
  - Decreased appetite [Unknown]
  - Skin discolouration [Unknown]
  - Hair colour changes [Unknown]
  - Headache [Unknown]
  - Fatigue [Unknown]
  - Skin exfoliation [Unknown]
  - Hyperkeratosis [Unknown]
  - Rash papular [Unknown]
  - Rash [Recovering/Resolving]
  - Pain [Unknown]
  - Pityriasis rosea [Unknown]
  - Blister [Not Recovered/Not Resolved]
  - Uterine leiomyoma [Unknown]
  - Haemorrhage [Unknown]
  - Device issue [Unknown]
  - Papule [Unknown]
  - Skin discolouration [Unknown]
  - Pruritus [Recovering/Resolving]

NARRATIVE: CASE EVENT DATE: 20230101
